FAERS Safety Report 5718920-4 (Version None)
Quarter: 2008Q2

REPORT INFORMATION
  Report Type: 
  Country: None (occurrence: None)
  Receive Date: 20080425
  Receipt Date: 20080416
  Transmission Date: 20081010
  Serious: Yes (Hospitalization)
  Sender: FDA-Public Use
  Company Number: US-ABBOTT-08P-163-0447624-00

PATIENT
  Sex: Female
  Weight: 63.5 kg

DRUGS (8)
  1. DEPAKOTE ER [Suspect]
     Indication: CONVULSION
     Dates: start: 20041001
  2. AZMACORT [Suspect]
     Indication: RESPIRATORY DISORDER
     Route: 055
     Dates: end: 20080330
  3. AZMACORT [Suspect]
     Route: 055
     Dates: start: 20080101
  4. PRIMIDONE [Interacting]
     Indication: CONVULSION
     Route: 048
     Dates: start: 20070901
  5. ANAESTHETICS [Suspect]
     Indication: GALLBLADDER OPERATION
     Dates: start: 20080205
  6. IPRATROPIUM BROMIDE [Concomitant]
     Indication: DRUG USE FOR UNKNOWN INDICATION
     Dates: end: 20080101
  7. PHENYTOIN [Concomitant]
     Indication: DRUG USE FOR UNKNOWN INDICATION
  8. LEVOTHYROXINE SODIUM [Concomitant]
     Indication: DRUG USE FOR UNKNOWN INDICATION

REACTIONS (17)
  - ASTHENIA [None]
  - BALANCE DISORDER [None]
  - CHOLELITHIASIS [None]
  - CONFUSIONAL STATE [None]
  - DEPRESSION [None]
  - DRUG INTERACTION [None]
  - DRY MOUTH [None]
  - DYSARTHRIA [None]
  - DYSPHONIA [None]
  - EMOTIONAL DISTRESS [None]
  - FATIGUE [None]
  - HEADACHE [None]
  - MENTAL STATUS CHANGES [None]
  - MOOD SWINGS [None]
  - MUSCLE TWITCHING [None]
  - SLUGGISHNESS [None]
  - WEIGHT DECREASED [None]
